FAERS Safety Report 6996609-1 (Version None)
Quarter: 2010Q3

REPORT INFORMATION
  Report Type: 
  Country: None (occurrence: None)
  Receive Date: 20100918
  Receipt Date: 20090529
  Transmission Date: 20110219
  Serious: No
  Sender: FDA-Public Use
  Company Number: US-WYE-H09550709

PATIENT
  Sex: Female
  Weight: 61.29 kg

DRUGS (3)
  1. EFFEXOR XR [Suspect]
     Indication: MENOPAUSAL SYMPTOMS
     Route: 048
  2. CRESTOR [Concomitant]
  3. ENTOCORT EC [Interacting]
     Indication: COLITIS
     Dosage: 3 MG, FREQUENCY UNSPECIFIED
     Dates: start: 20090501

REACTIONS (3)
  - CONDITION AGGRAVATED [None]
  - DRUG INTERACTION [None]
  - MENOPAUSAL SYMPTOMS [None]
